FAERS Safety Report 9348568 (Version 1)
Quarter: 2013Q2

REPORT INFORMATION
  Report Type: Spontaneous
  Country: JP (occurrence: JP)
  Receive Date: 20130614
  Receipt Date: 20130614
  Transmission Date: 20140414
  Serious: Yes (Hospitalization)
  Sender: FDA-Public Use
  Company Number: JP-B.I. PHARMACEUTICALS,INC./RIDGEFIELD-2013-BI-17155GD

PATIENT
  Age: 80 Year
  Sex: Male

DRUGS (2)
  1. TELMISARTAN [Suspect]
     Indication: HYPERTENSION
     Dosage: 40 MG
     Route: 048
  2. AZELNIDIPINE [Suspect]
     Indication: HYPERTENSION
     Dosage: 16 MG

REACTIONS (3)
  - Renovascular hypertension [Unknown]
  - Ischaemic nephropathy [Unknown]
  - Renal artery stenosis [Unknown]
